FAERS Safety Report 10353944 (Version 1)
Quarter: 2014Q3

REPORT INFORMATION
  Report Type: Spontaneous
  Country: US (occurrence: US)
  Receive Date: 20140731
  Receipt Date: 20140731
  Transmission Date: 20150326
  Serious: No
  Sender: FDA-Public Use
  Company Number: US-009507513-1407USA013565

PATIENT
  Age: 25 Year
  Sex: Female
  Weight: 114.29 kg

DRUGS (1)
  1. NUVARING [Suspect]
     Active Substance: ETHINYL ESTRADIOL\ETONOGESTREL
     Indication: CONTRACEPTION
     Dosage: 3 WEEKS IN 1 WEEK OUT
     Route: 067
     Dates: start: 20140708

REACTIONS (4)
  - Breast tenderness [Unknown]
  - Emotional disorder [Unknown]
  - Fatigue [Unknown]
  - Menorrhagia [Unknown]

NARRATIVE: CASE EVENT DATE: 201407
